FAERS Safety Report 5099031-0 (Version None)
Quarter: 2006Q3

REPORT INFORMATION
  Report Type: 
  Country: None (occurrence: None)
  Receive Date: 20060731
  Receipt Date: 20051212
  Transmission Date: 20061208
  Serious: Yes (Death)
  Sender: FDA-Public Use
  Company Number: 220282

PATIENT
  Age: 60 Year
  Sex: Female

DRUGS (4)
  1. RITUXAN [Suspect]
     Indication: NON-HODGKIN'S LYMPHOMA
     Dosage: 50 MG,
  2. ALLOPURINOL [Concomitant]
  3. DEXAMETHASONE TAB [Concomitant]
  4. DIPHENHYDRAMINE (DIPHENHYDRAMINE NOS) [Concomitant]

REACTIONS (1)
  - TUMOUR LYSIS SYNDROME [None]
